FAERS Safety Report 24300599 (Version 1)
Quarter: 2024Q3

REPORT INFORMATION
  Report Type: Spontaneous
  Country: JP (occurrence: JP)
  Receive Date: 20240910
  Receipt Date: 20240910
  Transmission Date: 20241016
  Serious: Yes (Life-Threatening, Other)
  Sender: SANDOZ
  Company Number: JP-SANDOZ INC.-SDZ2024JP077933

PATIENT
  Age: 68 Year
  Sex: Female

DRUGS (1)
  1. EPINEPHRINE\LIDOCAINE HYDROCHLORIDE [Suspect]
     Active Substance: EPINEPHRINE\LIDOCAINE HYDROCHLORIDE
     Indication: Infiltration anaesthesia
     Dosage: 3.6CC
     Route: 004

REACTIONS (2)
  - Cardiac arrest [Recovered/Resolved]
  - Trigemino-cardiac reflex [Recovered/Resolved]
